FAERS Safety Report 7448510-7 (Version None)
Quarter: 2011Q2

REPORT INFORMATION
  Report Type: 
  Country: None (occurrence: None)
  Receive Date: 20110429
  Receipt Date: 20100615
  Transmission Date: 20111010
  Serious: No
  Sender: FDA-Public Use
  Company Number: US-ASTRAZENECA-2010SE28235

PATIENT
  Sex: Female

DRUGS (2)
  1. PRILOSEC [Suspect]
     Indication: IRRITABLE BOWEL SYNDROME
     Route: 048
     Dates: start: 20090101
  2. NEXIUM [Suspect]
     Indication: EROSIVE OESOPHAGITIS
     Dates: start: 20100101

REACTIONS (3)
  - MEMORY IMPAIRMENT [None]
  - GRANULOMA [None]
  - DRUG INEFFECTIVE [None]
